FAERS Safety Report 10676495 (Version 1)
Quarter: 2014Q4

REPORT INFORMATION
  Report Type: Spontaneous
  Country: US (occurrence: None)
  Receive Date: 20141223
  Receipt Date: 20141223
  Transmission Date: 20150529
  Serious: Yes (Other)
  Sender: FDA-Public Use
  Company Number: None

PATIENT
  Age: 68 Year
  Sex: Male
  Weight: 99.79 kg

DRUGS (1)
  1. AMOXICYLLIN 500 MG KAISER PERMANENTE [Suspect]
     Active Substance: AMOXICILLIN
     Indication: TOOTH INFECTION
     Dosage: 3PILLS
     Route: 048
     Dates: start: 20141215, end: 20141218

REACTIONS (8)
  - Dizziness [None]
  - Hypersensitivity [None]
  - Neuralgia [None]
  - Neck pain [None]
  - Skin irritation [None]
  - Asthenia [None]
  - Myalgia [None]
  - Malaise [None]

NARRATIVE: CASE EVENT DATE: 20141209
